FAERS Safety Report 26087808 (Version 1)
Quarter: 2025Q4

REPORT INFORMATION
  Report Type: Spontaneous
  Country: US (occurrence: None)
  Receive Date: 20251125
  Receipt Date: 20251125
  Transmission Date: 20260117
  Serious: No
  Sender: AMERICAN REGENT
  Company Number: US-AMERICAN REGENT INC-2025001387

PATIENT
  Age: 31 Year
  Sex: Female
  Weight: 167 kg

DRUGS (9)
  1. VENOFER [Suspect]
     Active Substance: IRON SUCROSE
     Indication: Iron deficiency anaemia
     Dosage: UNK UNK, SINGLE
     Dates: start: 20240830, end: 20240830
  2. VENOFER [Suspect]
     Active Substance: IRON SUCROSE
     Dosage: UNK UNK, SINGLE
     Dates: start: 20240903, end: 20240903
  3. VENOFER [Suspect]
     Active Substance: IRON SUCROSE
     Dosage: UNK UNK, SINGLE
     Dates: start: 20240906, end: 20240906
  4. VENOFER [Suspect]
     Active Substance: IRON SUCROSE
     Dosage: UNK UNK, SINGLE
     Dates: start: 20240912, end: 20240912
  5. VENOFER [Suspect]
     Active Substance: IRON SUCROSE
     Dosage: UNK UNK, SINGLE
     Dates: start: 20240917, end: 20240917
  6. VENOFER [Suspect]
     Active Substance: IRON SUCROSE
     Dosage: UNK UNK, SINGLE
     Dates: start: 20250307, end: 20250307
  7. VENOFER [Suspect]
     Active Substance: IRON SUCROSE
     Dosage: UNK UNK, SINGLE
     Dates: start: 20250314, end: 20250314
  8. VENOFER [Suspect]
     Active Substance: IRON SUCROSE
     Dosage: 200 MILLIGRAM IN NS 100ML
     Dates: start: 20250317, end: 20250317
  9. VENOFER [Suspect]
     Active Substance: IRON SUCROSE
     Dosage: UNK UNK, SINGLE
     Dates: start: 2025, end: 2025

REACTIONS (5)
  - Vomiting [Recovered/Resolved]
  - Nausea [Recovered/Resolved]
  - Diarrhoea [Recovered/Resolved]
  - Product quality issue [Unknown]
  - Incorrect product administration duration [Unknown]

NARRATIVE: CASE EVENT DATE: 20250301
